FAERS Safety Report 9095988 (Version 1)
Quarter: 2013Q1

REPORT INFORMATION
  Report Type: Report from Study
  Country: CA (occurrence: CA)
  Receive Date: 20130207
  Receipt Date: 20130207
  Transmission Date: 20140127
  Serious: Yes (Other)
  Sender: FDA-Public Use
  Company Number: CA-JNJFOC-20130116778

PATIENT
  Age: 51 Year
  Sex: Female
  Weight: 64 kg

DRUGS (10)
  1. REMICADE [Suspect]
     Indication: CROHN^S DISEASE
     Route: 042
     Dates: start: 20120704
  2. SULFASALAZINE [Concomitant]
     Route: 065
  3. ACTONEL [Concomitant]
     Route: 065
  4. MTX [Concomitant]
     Route: 065
  5. BISOPROLOL [Concomitant]
     Route: 065
  6. CALCIUM [Concomitant]
     Route: 065
  7. OMEGA 3 [Concomitant]
     Route: 065
  8. PROBIOTICS [Concomitant]
     Route: 065
  9. VITAMIN D [Concomitant]
     Route: 065
  10. FOLIC ACID [Concomitant]
     Route: 065

REACTIONS (3)
  - Lower respiratory tract infection [Recovered/Resolved]
  - Respiratory tract congestion [Recovered/Resolved]
  - Sinus congestion [Recovered/Resolved]
